FAERS Safety Report 25472214 (Version 1)
Quarter: 2025Q2

REPORT INFORMATION
  Report Type: Report from Study
  Country: US (occurrence: US)
  Receive Date: 20250624
  Receipt Date: 20250624
  Transmission Date: 20250717
  Serious: Yes (Other)
  Sender: TAKEDA
  Company Number: US-TAKEDA-2024TUS129184

PATIENT
  Age: 70 Year
  Sex: Male
  Weight: 143 kg

DRUGS (19)
  1. FRUQUINTINIB [Suspect]
     Active Substance: FRUQUINTINIB
     Indication: Neoplasm malignant
  2. FRUQUINTINIB [Suspect]
     Active Substance: FRUQUINTINIB
     Indication: Colon cancer
  3. FRUQUINTINIB [Suspect]
     Active Substance: FRUQUINTINIB
  4. MIRTAZAPINE [Concomitant]
     Active Substance: MIRTAZAPINE
  5. DICLOFENAC SODIUM [Concomitant]
     Active Substance: DICLOFENAC SODIUM
  6. MELOXICAM [Concomitant]
     Active Substance: MELOXICAM
  7. LORATADINE [Concomitant]
     Active Substance: LORATADINE
  8. ONDANSETRON HYDROCHLORIDE [Concomitant]
     Active Substance: ONDANSETRON HYDROCHLORIDE
  9. SODIUM CHLORIDE [Concomitant]
     Active Substance: SODIUM CHLORIDE
  10. PANTOPRAZOLE SODIUM [Concomitant]
     Active Substance: PANTOPRAZOLE SODIUM
  11. MUCINEX [Concomitant]
     Active Substance: GUAIFENESIN
  12. GINKGO [Concomitant]
     Active Substance: GINKGO
  13. VITAMIN D [Concomitant]
     Active Substance: VITAMIN D NOS
  14. CALCIUM [Concomitant]
     Active Substance: CALCIUM
  15. TYLENOL EXTRA STRENGTH [Concomitant]
     Active Substance: ACETAMINOPHEN
  16. TADALAFIL [Concomitant]
     Active Substance: TADALAFIL
  17. LISINOPRIL [Concomitant]
     Active Substance: LISINOPRIL
  18. AMLODIPINE BESYLATE [Concomitant]
     Active Substance: AMLODIPINE BESYLATE
  19. PROCHLORPERAZINE MALEATE [Concomitant]
     Active Substance: PROCHLORPERAZINE MALEATE

REACTIONS (5)
  - Metastases to liver [Recovering/Resolving]
  - Constipation [Recovering/Resolving]
  - Drug ineffective [Unknown]
  - Off label use [Unknown]
  - Dysphonia [Unknown]

NARRATIVE: CASE EVENT DATE: 20241201
